FAERS Safety Report 12237003 (Version 1)
Quarter: 2016Q2

REPORT INFORMATION
  Report Type: Spontaneous
  Country: ES (occurrence: ES)
  Receive Date: 20160405
  Receipt Date: 20160405
  Transmission Date: 20160815
  Serious: Yes (Life-Threatening, Hospitalization, Other)
  Sender: FDA-Public Use
  Company Number: ES-ACCORD-039374

PATIENT
  Age: 84 Year
  Sex: Female

DRUGS (10)
  1. SOLIFENACIN/SOLIFENACIN SUCCINATE [Suspect]
     Active Substance: SOLIFENACIN SUCCINATE
     Indication: URINARY INCONTINENCE
  2. ESCITALOPRAM [Suspect]
     Active Substance: ESCITALOPRAM OXALATE
     Indication: PRODUCT USED FOR UNKNOWN INDICATION
  3. AMIODARONE [Suspect]
     Active Substance: AMIODARONE
     Indication: PRODUCT USED FOR UNKNOWN INDICATION
     Route: 042
  4. FUROSEMIDE. [Concomitant]
     Active Substance: FUROSEMIDE
  5. ACENOCOUMAROL [Concomitant]
     Active Substance: ACENOCOUMAROL
  6. SULPIRIDE/SULPIRIDE ADAMANTANECARBOXYLAT [Suspect]
     Active Substance: SULPIRIDE
     Indication: PRODUCT USED FOR UNKNOWN INDICATION
  7. CANDESARTAN [Concomitant]
     Active Substance: CANDESARTAN
  8. DIGOXIN. [Suspect]
     Active Substance: DIGOXIN
     Indication: PRODUCT USED FOR UNKNOWN INDICATION
  9. SIMVASTATIN. [Concomitant]
     Active Substance: SIMVASTATIN
  10. LEVOFLOXACIN/LEVOFLOXACIN MESYLATE [Suspect]
     Active Substance: LEVOFLOXACIN
     Indication: RESPIRATORY TRACT INFECTION

REACTIONS (4)
  - Hypokalaemia [Recovered/Resolved]
  - Electrocardiogram QT prolonged [Recovered/Resolved]
  - Torsade de pointes [Recovered/Resolved]
  - Hypomagnesaemia [Recovered/Resolved]
